FAERS Safety Report 25831157 (Version 3)
Quarter: 2025Q4

REPORT INFORMATION
  Report Type: Report from Study
  Country: EU (occurrence: EU)
  Receive Date: 20250922
  Receipt Date: 20251015
  Transmission Date: 20260118
  Serious: Yes (Hospitalization)
  Sender: ROCHE
  Company Number: EU-CHEPLA-2025010583

PATIENT
  Age: 52 Year
  Sex: Female

DRUGS (14)
  1. BEVACIZUMAB [Suspect]
     Active Substance: BEVACIZUMAB
     Indication: Colorectal cancer
     Dosage: COMBINATION OF XELIRI AND BEVACIZUMAB (TWO CYCLES ADMINISTERED)
     Route: 065
     Dates: start: 202402, end: 202404
  2. BEVACIZUMAB [Suspect]
     Active Substance: BEVACIZUMAB
     Indication: Metastases to liver
  3. XELODA [Suspect]
     Active Substance: CAPECITABINE
     Indication: Colorectal cancer
     Dosage: XELOX REGIMEN (4 CYCLES)
     Route: 065
  4. XELODA [Suspect]
     Active Substance: CAPECITABINE
     Indication: Metastases to liver
     Dosage: COMBINATION OF XELIRI AND BEVACIZUMAB (TWO CYCLES ADMINISTERED))
     Route: 065
     Dates: start: 202402, end: 202404
  5. IRINOTECAN [Suspect]
     Active Substance: IRINOTECAN
     Indication: Colorectal cancer
     Dosage: COMBINATION OF XELIRI AND BEVACIZUMAB (TWO CYCLES ADMINISTERED)
     Route: 065
     Dates: start: 202402, end: 202404
  6. IRINOTECAN [Suspect]
     Active Substance: IRINOTECAN
     Indication: Metastases to liver
  7. OXALIPLATIN [Concomitant]
     Active Substance: OXALIPLATIN
     Indication: Colorectal cancer
     Dosage: XELOX REGIMEN (4 CYCLES)
     Route: 065
  8. OXALIPLATIN [Concomitant]
     Active Substance: OXALIPLATIN
     Indication: Metastases to liver
  9. FLUOROURACIL [Concomitant]
     Active Substance: FLUOROURACIL
     Indication: Colorectal cancer
     Dosage: FOLFOX6 AND PANITUMUMAB
     Route: 065
     Dates: start: 2022
  10. FLUOROURACIL [Concomitant]
     Active Substance: FLUOROURACIL
     Indication: Metastases to liver
  11. LEUCOVORIN CALCIUM [Concomitant]
     Active Substance: LEUCOVORIN CALCIUM
     Indication: Colorectal cancer
     Dosage: FOLFOX6 AND PANITUMUMAB
     Route: 065
     Dates: start: 2022
  12. LEUCOVORIN CALCIUM [Concomitant]
     Active Substance: LEUCOVORIN CALCIUM
     Indication: Metastases to liver
  13. PANITUMUMAB [Concomitant]
     Active Substance: PANITUMUMAB
     Indication: Colorectal cancer
     Dosage: FOLFOX6 AND PANITUMUMAB
     Route: 065
     Dates: start: 2022
  14. PANITUMUMAB [Concomitant]
     Active Substance: PANITUMUMAB
     Indication: Metastases to liver

REACTIONS (2)
  - Pyrexia [Recovered/Resolved]
  - Diarrhoea [Recovered/Resolved]

NARRATIVE: CASE EVENT DATE: 20240401
